FAERS Safety Report 5131920-0 (Version None)
Quarter: 2006Q4

REPORT INFORMATION
  Report Type: 
  Country: None (occurrence: None)
  Receive Date: 20061016
  Receipt Date: 20061002
  Transmission Date: 20070319
  Serious: Yes (Other)
  Sender: FDA-Public Use
  Company Number: 2006120314

PATIENT
  Age: 79 Year
  Sex: Female
  Weight: 77.1115 kg

DRUGS (5)
  1. DETROL LA [Suspect]
     Indication: HYPERTONIC BLADDER
     Dates: start: 20050101
  2. ACETYSALICYLIC ACID (ACETYSALICYLIC ACID) [Concomitant]
  3. BENICAR [Concomitant]
  4. ATENOLOL [Concomitant]
  5. SYNTHROID [Concomitant]

REACTIONS (2)
  - BREAST CANCER FEMALE [None]
  - RASH [None]
